FAERS Safety Report 19651181 (Version 1)
Quarter: 2021Q3

REPORT INFORMATION
  Report Type: Spontaneous
  Country: HR (occurrence: HR)
  Receive Date: 20210803
  Receipt Date: 20210803
  Transmission Date: 20211014
  Serious: Yes (Other)
  Sender: FDA-Public Use
  Company Number: HR-TEVA-2021-HR-1938572

PATIENT
  Age: 28 Year
  Sex: Female

DRUGS (6)
  1. MISAR [ALPRAZOLAM] [Suspect]
     Active Substance: ALPRAZOLAM
     Dosage: UNK
     Route: 048
     Dates: start: 2021, end: 2021
  2. QUETIAPIN [Suspect]
     Active Substance: QUETIAPINE
     Dosage: UNK
     Route: 048
     Dates: start: 2021, end: 2021
  3. SERPENTIL [ESCITALOPRAM OXALATE] [Suspect]
     Active Substance: ESCITALOPRAM OXALATE
     Dosage: UNK
     Route: 048
     Dates: start: 2021, end: 2021
  4. LAMAL [Suspect]
     Active Substance: LAMOTRIGINE
     Dosage: UNK
     Route: 048
     Dates: start: 2021, end: 2021
  5. LADIOMIL [Suspect]
     Active Substance: MAPROTILINE HYDROCHLORIDE
     Dosage: UNK
     Route: 048
     Dates: start: 2021, end: 2021
  6. LEPONEX [Suspect]
     Active Substance: CLOZAPINE
     Dosage: UNK
     Route: 048
     Dates: start: 2021, end: 2021

REACTIONS (2)
  - Loss of consciousness [Unknown]
  - Somnolence [Unknown]

NARRATIVE: CASE EVENT DATE: 2021
